FAERS Safety Report 4551625-4 (Version None)
Quarter: 2005Q1

REPORT INFORMATION
  Report Type: 
  Country: None (occurrence: None)
  Receive Date: 20050107
  Receipt Date: 20041227
  Transmission Date: 20050727
  Serious: Yes (Other)
  Sender: FDA-Public Use
  Company Number: 200410657BFR

PATIENT
  Age: 69 Year
  Sex: Male

DRUGS (2)
  1. MOXIFLOXACIN HYDROCHLORIDE [Suspect]
     Indication: BRONCHITIS
     Dosage: 400 MG TOTAL DAILY ORAL
     Route: 048
     Dates: start: 20041222, end: 20041227
  2. MOXIFLOXACIN HYDROCHLORIDE [Suspect]
     Indication: SUPERINFECTION LUNG
     Dosage: 400 MG TOTAL DAILY ORAL
     Route: 048
     Dates: start: 20041222, end: 20041227

REACTIONS (3)
  - DIPLOPIA [None]
  - DISCOMFORT [None]
  - VITREOUS FLOATERS [None]
